FAERS Safety Report 11640000 (Version 1)
Quarter: 2015Q4

REPORT INFORMATION
  Report Type: Spontaneous
  Country: US (occurrence: US)
  Receive Date: 20151019
  Receipt Date: 20151019
  Transmission Date: 20160304
  Serious: No
  Sender: FDA-Public Use
  Company Number: US-PFIZER INC-2015334370

PATIENT
  Age: 69 Year
  Sex: Female
  Weight: 68 kg

DRUGS (3)
  1. SYNTHROID [Concomitant]
     Active Substance: LEVOTHYROXINE SODIUM
     Indication: HYPOTHYROIDISM
     Dosage: 0.88 ?G, 1X/DAY
     Route: 048
  2. COLESTIPOL HCL [Suspect]
     Active Substance: COLESTIPOL HYDROCHLORIDE
     Indication: BLOOD CHOLESTEROL INCREASED
     Dosage: 1 G, 2X/DAY
     Route: 048
  3. ZETIA [Concomitant]
     Active Substance: EZETIMIBE

REACTIONS (3)
  - Product physical issue [Unknown]
  - Throat irritation [Recovered/Resolved]
  - Poor quality drug administered [Unknown]

NARRATIVE: CASE EVENT DATE: 201509
